FAERS Safety Report 8376045-6 (Version None)
Quarter: 2012Q2

REPORT INFORMATION
  Report Type: 
  Country: None (occurrence: None)
  Receive Date: 20120517
  Receipt Date: 20120502
  Transmission Date: 20120825
  Serious: Yes (Hospitalization)
  Sender: FDA-Public Use
  Company Number: DSJ-2012-03050

PATIENT
  Age: 48 Year
  Sex: Male

DRUGS (1)
  1. BENICAR [Suspect]
     Indication: HYPERTENSION
     Dosage: 40 MG (40 MG, 1 IN 1 D) PER ORAL
     Route: 048
     Dates: start: 20100801, end: 20120215

REACTIONS (3)
  - DRUG INEFFECTIVE [None]
  - DIPLOPIA [None]
  - ERYSIPELAS [None]
